FAERS Safety Report 8348972-7 (Version None)
Quarter: 2012Q2

REPORT INFORMATION
  Report Type: 
  Country: None (occurrence: None)
  Receive Date: 20120508
  Receipt Date: 20120418
  Transmission Date: 20120825
  Serious: Yes (Other)
  Sender: FDA-Public Use
  Company Number: COL_11441_2012

PATIENT
  Sex: Female

DRUGS (3)
  1. PLAVIX [Concomitant]
  2. BLOOD PRESSURE MEDICATION [Concomitant]
  3. COLGATE TRIPLE ACTION TOOTHPASTE [Suspect]
     Indication: DENTAL CARIES
     Dosage: 1 CM ON TOOTHBRUSH/ONCE/ ORAL
     Route: 048
     Dates: start: 20120414, end: 20120414

REACTIONS (4)
  - ORAL DISCOMFORT [None]
  - LIP SWELLING [None]
  - GLOSSODYNIA [None]
  - THROAT TIGHTNESS [None]
